FAERS Safety Report 16250670 (Version 1)
Quarter: 2019Q2

REPORT INFORMATION
  Report Type: Spontaneous
  Country: US (occurrence: US)
  Receive Date: 20190429
  Receipt Date: 20190429
  Transmission Date: 20190711
  Serious: No
  Sender: FDA-Public Use
  Company Number: US-NEXGEN PHARMA, INC.-2066386

PATIENT
  Age: 51 Year
  Sex: Male

DRUGS (1)
  1. CHENODAL [Suspect]
     Active Substance: CHENODIOL
     Indication: CHOLELITHIASIS
     Route: 048
     Dates: start: 20190329

REACTIONS (1)
  - Diarrhoea [Recovered/Resolved]
